FAERS Safety Report 16658741 (Version 1)
Quarter: 2019Q3

REPORT INFORMATION
  Report Type: Spontaneous
  Country: PL (occurrence: PL)
  Receive Date: 20190801
  Receipt Date: 20190801
  Transmission Date: 20191004
  Serious: Yes (Other)
  Sender: FDA-Public Use
  Company Number: PL-BAUSCH-BL-2019-021639

PATIENT
  Age: 6 Year
  Sex: Female

DRUGS (21)
  1. PHENYTOIN. [Suspect]
     Active Substance: PHENYTOIN
     Route: 048
  2. TOPIRAMATE. [Suspect]
     Active Substance: TOPIRAMATE
     Indication: FRONTAL LOBE EPILEPSY
     Route: 065
  3. CARBAMAZEPINE. [Suspect]
     Active Substance: CARBAMAZEPINE
     Indication: FRONTAL LOBE EPILEPSY
     Route: 065
  4. PHENYTOIN. [Suspect]
     Active Substance: PHENYTOIN
     Indication: FRONTAL LOBE EPILEPSY
     Route: 042
  5. LEVETIRACETAM. [Suspect]
     Active Substance: LEVETIRACETAM
     Dosage: INTRODUCED AT THE END OF LIDOCAINE INFUSION
     Route: 065
  6. DIAZEPAM. [Suspect]
     Active Substance: DIAZEPAM
     Indication: FRONTAL LOBE EPILEPSY
     Dosage: USED DURING THE ADMISSION BEFORE LIDOCAINE INFUSION
     Route: 065
  7. TOPIRAMATE. [Suspect]
     Active Substance: TOPIRAMATE
     Dosage: USED DURING THE ADMISSION BEFORE LIDOCAINE INFUSION
     Route: 065
  8. LEVETIRACETAM. [Suspect]
     Active Substance: LEVETIRACETAM
     Dosage: USED DURING THE ADMISSION BEFORE LIDOCAINE INFUSION
     Route: 065
  9. LAMOTRIGINE. [Suspect]
     Active Substance: LAMOTRIGINE
     Indication: FRONTAL LOBE EPILEPSY
     Route: 065
  10. CLONAZEPAM. [Suspect]
     Active Substance: CLONAZEPAM
     Indication: FRONTAL LOBE EPILEPSY
     Dosage: USED DURING THE ADMISSION BEFORE LIDOCAINE INFUSION
     Route: 065
  11. LEVETIRACETAM. [Suspect]
     Active Substance: LEVETIRACETAM
     Indication: FRONTAL LOBE EPILEPSY
     Route: 065
  12. OXCARBAZEPINE. [Suspect]
     Active Substance: OXCARBAZEPINE
     Indication: FRONTAL LOBE EPILEPSY
     Route: 065
  13. CARBAMAZEPINE. [Suspect]
     Active Substance: CARBAMAZEPINE
     Dosage: USED DURING THE ADMISSION BEFORE LIDOCAINE INFUSION
     Route: 065
  14. PHENYTOIN. [Suspect]
     Active Substance: PHENYTOIN
     Dosage: INTRODUCED AT THE END OF LIDOCAINE INFUSION
     Route: 048
  15. TETRACOSACTIDE [Suspect]
     Active Substance: COSYNTROPIN
     Indication: FRONTAL LOBE EPILEPSY
     Route: 030
  16. PHENOBARBITAL. [Suspect]
     Active Substance: PHENOBARBITAL
     Dosage: USED DURING THE ADMISSION BEFORE LIDOCAINE INFUSION
     Route: 065
  17. VIGABATRIN. [Suspect]
     Active Substance: VIGABATRIN
     Indication: FRONTAL LOBE EPILEPSY
     Route: 065
  18. VALPROIC ACID. [Suspect]
     Active Substance: VALPROIC ACID
     Indication: FRONTAL LOBE EPILEPSY
     Route: 065
  19. PHENOBARBITAL. [Suspect]
     Active Substance: PHENOBARBITAL
     Indication: FRONTAL LOBE EPILEPSY
     Route: 065
  20. CLOBAZAM. [Suspect]
     Active Substance: CLOBAZAM
     Indication: FRONTAL LOBE EPILEPSY
     Route: 065
  21. LACOSAMIDE. [Suspect]
     Active Substance: LACOSAMIDE
     Indication: FRONTAL LOBE EPILEPSY
     Route: 065

REACTIONS (1)
  - Drug resistance [Unknown]
